FAERS Safety Report 6588707-1 (Version None)
Quarter: 2010Q1

REPORT INFORMATION
  Report Type: 
  Country: None (occurrence: None)
  Receive Date: 20100218
  Receipt Date: 20091130
  Transmission Date: 20100710
  Serious: Yes (Death, Hospitalization)
  Sender: FDA-Public Use
  Company Number: JP-SANOFI-AVENTIS-2009SA006094

PATIENT
  Age: 88 Year
  Sex: Male

DRUGS (3)
  1. PLAVIX [Suspect]
     Indication: CEREBROVASCULAR DISORDER
     Route: 048
     Dates: start: 20060824, end: 20070317
  2. MAGNESIUM OXIDE [Concomitant]
     Route: 048
     Dates: start: 20060824, end: 20070505
  3. SELBEX [Concomitant]
     Route: 048
     Dates: start: 20060824, end: 20070505

REACTIONS (2)
  - PNEUMONIA [None]
  - WHITE BLOOD CELL COUNT INCREASED [None]
